FAERS Safety Report 4359149-4 (Version None)
Quarter: 2004Q2

REPORT INFORMATION
  Report Type: 
  Country: None (occurrence: None)
  Receive Date: 20040512
  Receipt Date: 20040326
  Transmission Date: 20050107
  Serious: Yes (Life-Threatening, Other)
  Sender: FDA-Public Use
  Company Number: BE-JNJFOC-20030604652

PATIENT
  Age: 57 Year
  Sex: Female

DRUGS (7)
  1. CISAPRIDE         (CISAPRIDE) [Suspect]
     Indication: IMPAIRED GASTRIC EMPTYING
     Dosage: SEE IMAGE, ORAL
     Route: 048
     Dates: start: 20030317, end: 20030626
  2. CISAPRIDE         (CISAPRIDE) [Suspect]
     Indication: IMPAIRED GASTRIC EMPTYING
     Dosage: SEE IMAGE, ORAL
     Route: 048
     Dates: start: 20030626, end: 20040127
  3. OMEPRAZOLE [Concomitant]
  4. LITICAN         (ALIZAPRIDE) [Concomitant]
  5. CITALOPRAM HYDROBROMIDE [Concomitant]
  6. LORAMET        (LORMETAZEPAM) [Concomitant]
  7. METHOTREXATE [Concomitant]

REACTIONS (4)
  - ELECTROCARDIOGRAM QT CORRECTED INTERVAL PROLONGED [None]
  - ELECTROCARDIOGRAM QT PROLONGED [None]
  - SINUS BRADYCARDIA [None]
  - VOMITING [None]
